FAERS Safety Report 16894680 (Version 1)
Quarter: 2019Q4

REPORT INFORMATION
  Report Type: Spontaneous
  Country: US (occurrence: US)
  Receive Date: 20191008
  Receipt Date: 20191008
  Transmission Date: 20200122
  Serious: No
  Sender: FDA-Public Use
  Company Number: US-INDIVIOR US-INDV-118801-2019

PATIENT
  Age: 50 Year
  Sex: Female

DRUGS (2)
  1. SUBOXONE [Suspect]
     Active Substance: BUPRENORPHINE HYDROCHLORIDE\NALOXONE HYDROCHLORIDE
     Indication: MIGRAINE
     Dosage: 1MG, UNK
     Route: 065
  2. SUBOXONE [Suspect]
     Active Substance: BUPRENORPHINE HYDROCHLORIDE\NALOXONE HYDROCHLORIDE
     Dosage: UNK (USED IT IN SHORT TAPERS)
     Route: 065

REACTIONS (8)
  - Vomiting [Recovered/Resolved]
  - Retching [Recovered/Resolved]
  - Drug abuse [Unknown]
  - Migraine [Not Recovered/Not Resolved]
  - Intentional underdose [Recovered/Resolved]
  - Drug dependence [Unknown]
  - Off label use [Recovered/Resolved]
  - Wrong technique in product usage process [Recovered/Resolved]

NARRATIVE: CASE EVENT DATE: 201903
